FAERS Safety Report 6502102-2 (Version None)
Quarter: 2009Q4

REPORT INFORMATION
  Report Type: 
  Country: None (occurrence: None)
  Receive Date: 20091214
  Receipt Date: 20091126
  Transmission Date: 20100525
  Serious: Yes (Hospitalization, Other)
  Sender: FDA-Public Use
  Company Number: 004066

PATIENT
  Age: 65 Year
  Sex: Female

DRUGS (4)
  1. MACUGEN [Suspect]
     Indication: CHOROIDAL NEOVASCULARISATION
     Dosage: 0.3MG, INTRAOCULAR
     Route: 031
     Dates: start: 20091125
  2. HYALEIN (HYALURONATE SODIUM) [Concomitant]
  3. TARIVID OPHTHALMIC (OFLOXACIN) [Concomitant]
  4. ARTIFICIAL TEARS [Concomitant]

REACTIONS (2)
  - LOSS OF CONSCIOUSNESS [None]
  - MALAISE [None]
